FAERS Safety Report 17005153 (Version 1)
Quarter: 2019Q4

REPORT INFORMATION
  Report Type: Spontaneous
  Country: US (occurrence: US)
  Receive Date: 20191107
  Receipt Date: 20191107
  Transmission Date: 20200122
  Serious: Yes (Hospitalization)
  Sender: FDA-Public Use
  Company Number: US-ENDO PHARMACEUTICALS INC-2019-109400

PATIENT
  Age: 26 Year
  Sex: Female

DRUGS (3)
  1. VASOSTRICT [Suspect]
     Active Substance: VASOPRESSIN
     Dosage: 0.02 UNITS/MIN, UNKNOWN
     Route: 042
  2. VASOSTRICT [Suspect]
     Active Substance: VASOPRESSIN
     Indication: CEREBRAL HYPOPERFUSION
     Dosage: 0.04 UNITS/MIN, UNKNOWN
     Route: 042
  3. NOREPINEPHRINE. [Concomitant]
     Active Substance: NOREPINEPHRINE
     Indication: CEREBRAL HYPOPERFUSION

REACTIONS (1)
  - Diabetes insipidus [Recovered/Resolved]
